FAERS Safety Report 4864325-8 (Version None)
Quarter: 2005Q4

REPORT INFORMATION
  Report Type: 
  Country: None (occurrence: None)
  Receive Date: 20051221
  Receipt Date: 20051221
  Transmission Date: 20060501
  Serious: Yes (Other)
  Sender: FDA-Public Use
  Company Number: None

PATIENT
  Sex: Female
  Weight: 72.3487 kg

DRUGS (1)
  1. OXYCONTIN [Suspect]
     Indication: OSTEOARTHRITIS
     Dosage: ORAL TID
     Route: 048
     Dates: start: 20020101

REACTIONS (4)
  - PRURITUS [None]
  - RESPIRATORY DISORDER [None]
  - STRIDOR [None]
  - SWELLING [None]
